FAERS Safety Report 17278024 (Version 1)
Quarter: 2020Q1

REPORT INFORMATION
  Report Type: Spontaneous
  Country: US (occurrence: US)
  Receive Date: 20191227
  Receipt Date: 20191227
  Transmission Date: 20200409
  Serious: No
  Sender: FDA-Public Use
  Company Number: None

PATIENT
  Sex: Female

DRUGS (1)
  1. XELJANZ XR [Suspect]
     Active Substance: TOFACITINIB CITRATE
     Route: 048
     Dates: start: 20191020, end: 20191209

REACTIONS (5)
  - Tremor [None]
  - Feeling abnormal [None]
  - Pain [None]
  - Therapy cessation [None]
  - Drug ineffective [None]
